FAERS Safety Report 9662830 (Version 2)
Quarter: 2013Q4

REPORT INFORMATION
  Report Type: Spontaneous
  Country: US (occurrence: US)
  Receive Date: 20131031
  Receipt Date: 20131031
  Transmission Date: 20140711
  Serious: No
  Sender: FDA-Public Use
  Company Number: US-PURDUE-USA-2010-0056492

PATIENT
  Age: 59 Year
  Sex: Male

DRUGS (4)
  1. OXYCONTIN (NDA 22-272) [Suspect]
     Indication: PLANTAR FASCIITIS
     Dosage: 40 MG, BID
     Dates: start: 201009
  2. OXYCONTIN (NDA 22-272) [Suspect]
     Indication: ARTHRITIS
  3. PERCOCET                           /00446701/ [Concomitant]
     Indication: PAIN
     Dosage: 1 TABLET, TID
  4. METHADONE [Concomitant]
     Indication: PRODUCT USED FOR UNKNOWN INDICATION
     Dosage: 30 MG, TID

REACTIONS (2)
  - Pain [Recovered/Resolved]
  - Drug effect decreased [Recovered/Resolved]
